FAERS Safety Report 8321527 (Version 2)
Quarter: 2013Q2

REPORT INFORMATION
  Report Type: Report from Study
  Country: US (occurrence: US)
  Receive Date: 20120104
  Receipt Date: 20130619
  Transmission Date: 20140414
  Serious: Yes (Other)
  Sender: FDA-Public Use
  Company Number: US-ABBOTT-11P-163-0887338-00

PATIENT
  Sex: Female
  Weight: 60.38 kg

DRUGS (6)
  1. HUMIRA [Suspect]
     Indication: RHEUMATOID ARTHRITIS
     Route: 058
     Dates: start: 2002, end: 201210
  2. HUMIRA [Suspect]
     Route: 058
     Dates: start: 2009
  3. HUMIRA [Suspect]
     Route: 058
     Dates: start: 20130417
  4. SPIRONOLACTONE [Concomitant]
     Indication: MIDDLE EAR EFFUSION
  5. UNKNOWN MEDICATION [Concomitant]
     Indication: BLOOD CHOLESTEROL INCREASED
  6. LEVOSTATIN [Concomitant]
     Indication: BLOOD CHOLESTEROL INCREASED

REACTIONS (7)
  - Meniere^s disease [Not Recovered/Not Resolved]
  - Vertigo [Recovering/Resolving]
  - Vomiting [Recovering/Resolving]
  - Rheumatoid arthritis [Recovered/Resolved]
  - Arthralgia [Not Recovered/Not Resolved]
  - Pain in jaw [Recovering/Resolving]
  - Joint stiffness [Recovering/Resolving]
